FAERS Safety Report 7333435-8 (Version None)
Quarter: 2011Q1

REPORT INFORMATION
  Report Type: 
  Country: None (occurrence: None)
  Receive Date: 20110304
  Receipt Date: 20110222
  Transmission Date: 20110831
  Serious: Yes (Other)
  Sender: FDA-Public Use
  Company Number: PHHY2010BR45465

PATIENT
  Age: 61 Year
  Sex: Female
  Weight: 58 kg

DRUGS (4)
  1. SIMVASTATIN [Concomitant]
     Dosage: 1 DF DAILY
     Route: 048
  2. PURAN T4 [Concomitant]
     Indication: THYROID NEOPLASM
     Dosage: 1 TABLET PER DAY
     Route: 048
  3. FORASEQ [Suspect]
     Indication: ASTHMA
     Dosage: 01 DF, UNK
  4. LIVIAL [Concomitant]
     Indication: MENOPAUSE
     Dosage: 1 TABLET PER DAY
     Route: 048

REACTIONS (2)
  - BLOOD CHOLESTEROL INCREASED [None]
  - RETINAL DEGENERATION [None]
